FAERS Safety Report 7820831-5 (Version None)
Quarter: 2011Q4

REPORT INFORMATION
  Report Type: 
  Country: None (occurrence: None)
  Receive Date: 20111018
  Receipt Date: 20111005
  Transmission Date: 20120403
  Serious: Yes (Hospitalization)
  Sender: FDA-Public Use
  Company Number: KR-ELI_LILLY_AND_COMPANY-KR201109004780

PATIENT
  Age: 40 Year
  Sex: Male
  Weight: 63 kg

DRUGS (1)
  1. HUMALOG MIX 75/25 [Suspect]
     Indication: DIABETES MELLITUS
     Dosage: 20 U, BID
     Dates: start: 20110627

REACTIONS (3)
  - OSTEOMYELITIS [None]
  - LACERATION [None]
  - FALL [None]
